FAERS Safety Report 17825439 (Version 1)
Quarter: 2020Q2

REPORT INFORMATION
  Report Type: Spontaneous
  Country: US (occurrence: US)
  Receive Date: 20200526
  Receipt Date: 20200526
  Transmission Date: 20200714
  Serious: No
  Sender: FDA-Public Use
  Company Number: US-ACTELION-A-US2019-197174

PATIENT
  Sex: Female
  Weight: 110.2 kg

DRUGS (3)
  1. REMODULIN [Concomitant]
     Active Substance: TREPROSTINIL
  2. TADALAFIL. [Concomitant]
     Active Substance: TADALAFIL
  3. OPSUMIT [Suspect]
     Active Substance: MACITENTAN
     Indication: PULMONARY ARTERIAL HYPERTENSION
     Dosage: 10 MG, QD
     Route: 048

REACTIONS (6)
  - Catheter site erythema [Not Recovered/Not Resolved]
  - Dyspnoea [Unknown]
  - Catheter site pruritus [Not Recovered/Not Resolved]
  - Hypoxia [Unknown]
  - Catheter site rash [Not Recovered/Not Resolved]
  - Catheter site irritation [Not Recovered/Not Resolved]
